FAERS Safety Report 14314824 (Version 1)
Quarter: 2017Q4

REPORT INFORMATION
  Report Type: Spontaneous
  Country: AU (occurrence: AU)
  Receive Date: 20171221
  Receipt Date: 20171221
  Transmission Date: 20180321
  Serious: Yes (Other)
  Sender: FDA-Public Use
  Company Number: AU-ELI_LILLY_AND_COMPANY-AU201712006669

PATIENT
  Age: 23 Year
  Sex: Male

DRUGS (10)
  1. QUETIAPINE. [Concomitant]
     Active Substance: QUETIAPINE
     Dosage: 25 MG, EACH EVENING
     Route: 048
     Dates: start: 20170718, end: 20171004
  2. QUETIAPINE. [Concomitant]
     Active Substance: QUETIAPINE
     Indication: PRODUCT USED FOR UNKNOWN INDICATION
     Dosage: 12.5 MG, EACH EVENING
     Route: 048
  3. RISPERIDONE. [Concomitant]
     Active Substance: RISPERIDONE
     Indication: PRODUCT USED FOR UNKNOWN INDICATION
     Dosage: 3 MG, BID
     Route: 065
     Dates: start: 2017
  4. VENLAFAXINE [Concomitant]
     Active Substance: VENLAFAXINE HYDROCHLORIDE
     Indication: DEPRESSED MOOD
     Dosage: 225 MG, DAILY
     Route: 065
  5. DOXYCYCLINE. [Concomitant]
     Active Substance: DOXYCYCLINE
     Indication: ACNE
     Dosage: 100 MG, EACH MORNING
     Route: 048
  6. FISH OIL [Concomitant]
     Active Substance: FISH OIL
     Indication: PRODUCT USED FOR UNKNOWN INDICATION
     Dosage: 2 U, EACH MORNING
     Route: 048
  7. OLANZAPINE. [Suspect]
     Active Substance: OLANZAPINE
     Indication: SCHIZOPHRENIA
     Dosage: 25 MG, UNK
     Route: 048
     Dates: start: 2017, end: 20171004
  8. AGOMELATINE [Concomitant]
     Active Substance: AGOMELATINE
     Indication: PRODUCT USED FOR UNKNOWN INDICATION
     Dosage: 25 MG, EACH EVENING
     Route: 048
     Dates: start: 20170713, end: 20171004
  9. CLOZAPINE. [Concomitant]
     Active Substance: CLOZAPINE
     Indication: SCHIZOPHRENIA
     Dosage: 200 MG, EACH EVENING
     Route: 048
     Dates: start: 20170920
  10. VENLAFAXINE [Concomitant]
     Active Substance: VENLAFAXINE HYDROCHLORIDE
     Indication: DEPRESSION
     Dosage: 150 MG, EACH MORNING
     Route: 048
     Dates: start: 20171004

REACTIONS (9)
  - Dyslipidaemia [Unknown]
  - Aspartate aminotransferase increased [Unknown]
  - Blood prolactin increased [Unknown]
  - Delusion [Recovered/Resolved]
  - Hypertension [Unknown]
  - Alanine aminotransferase increased [Unknown]
  - Hallucination, auditory [Recovered/Resolved]
  - Hypersomnia [Unknown]
  - Overdose [Unknown]
